FAERS Safety Report 4841949-5 (Version None)
Quarter: 2005Q4

REPORT INFORMATION
  Report Type: 
  Country: None (occurrence: None)
  Receive Date: 20051130
  Receipt Date: 20051011
  Transmission Date: 20060501
  Serious: No
  Sender: FDA-Public Use
  Company Number: US-GLAXOSMITHKLINE-A0577824A

PATIENT
  Age: 63 Year
  Sex: Female

DRUGS (2)
  1. WELLBUTRIN XL [Suspect]
     Indication: DEPRESSION
     Dosage: 150MG PER DAY
     Route: 048
  2. XANAX [Concomitant]

REACTIONS (5)
  - DRUG ADMINISTRATION ERROR [None]
  - FEELING ABNORMAL [None]
  - INSOMNIA [None]
  - TINNITUS [None]
  - WEIGHT DECREASED [None]
